FAERS Safety Report 22395725 (Version 1)
Quarter: 2023Q2

REPORT INFORMATION
  Report Type: Spontaneous
  Country: ES (occurrence: None)
  Receive Date: 20230601
  Receipt Date: 20230601
  Transmission Date: 20230722
  Serious: Yes (Hospitalization, Other)
  Sender: FDA-Public Use
  Company Number: ES-Eisai Medical Research-EC-2023-140900

PATIENT
  Age: 46 Year
  Sex: Male

DRUGS (1)
  1. LENVATINIB [Suspect]
     Active Substance: LENVATINIB
     Indication: Huerthle cell carcinoma
     Dosage: DOSE AND FREQUENCY UNKNOWN
     Route: 048

REACTIONS (4)
  - Pancreatitis haemorrhagic [Recovering/Resolving]
  - Arterial haemorrhage [Recovering/Resolving]
  - Pulmonary embolism [Unknown]
  - Transaminases increased [Unknown]
